FAERS Safety Report 7988763-X (Version None)
Quarter: 2011Q4

REPORT INFORMATION
  Report Type: 
  Country: None (occurrence: None)
  Receive Date: 20111219
  Receipt Date: 20111208
  Transmission Date: 20120403
  Serious: No
  Sender: FDA-Public Use
  Company Number: US-BIOGENIDEC-2011BI000498

PATIENT
  Age: 23 Year
  Sex: Female
  Weight: 99 kg

DRUGS (3)
  1. AVONEX [Suspect]
     Indication: MULTIPLE SCLEROSIS
     Route: 030
     Dates: start: 20021025, end: 20040326
  2. AVONEX [Suspect]
     Route: 030
     Dates: start: 20101229
  3. PAIN MEDICATION [Concomitant]

REACTIONS (8)
  - SPINAL CORD DISORDER [None]
  - EYE DISORDER [None]
  - ILL-DEFINED DISORDER [None]
  - MOBILITY DECREASED [None]
  - ARTHRALGIA [None]
  - PAIN [None]
  - INTERVERTEBRAL DISC PROTRUSION [None]
  - BLINDNESS UNILATERAL [None]
